FAERS Safety Report 14267695 (Version 5)
Quarter: 2019Q3

REPORT INFORMATION
  Report Type: Spontaneous
  Country: US (occurrence: US)
  Receive Date: 20171211
  Receipt Date: 20190812
  Transmission Date: 20191004
  Serious: No
  Sender: FDA-Public Use
  Company Number: US-PFIZER INC-2017479423

PATIENT
  Age: 9 Year
  Sex: Female
  Weight: 20.86 kg

DRUGS (8)
  1. FOCALIN [Concomitant]
     Active Substance: DEXMETHYLPHENIDATE HYDROCHLORIDE
     Indication: ATTENTION DEFICIT/HYPERACTIVITY DISORDER
     Dosage: 10 MG, 1X/DAY, (IN THE MORNING)
     Route: 048
  2. GENOTROPIN [Suspect]
     Active Substance: SOMATROPIN
     Dosage: 1.1 MG, DAILY
     Dates: start: 20171012
  3. IBUPROFEN. [Concomitant]
     Active Substance: IBUPROFEN
     Indication: JUVENILE IDIOPATHIC ARTHRITIS
     Dosage: UNK, 2X/DAY
  4. FOCALIN [Concomitant]
     Active Substance: DEXMETHYLPHENIDATE HYDROCHLORIDE
     Dosage: 5 MG, UNK (TAKEN IN THE AFTERNOON AROUND 3 O^ CLOCK)
  5. GENOTROPIN [Suspect]
     Active Substance: SOMATROPIN
     Dosage: UNK, 1X/DAY (INJECTION IN LEG)
  6. DEXMETHYLPHENIDATE [Concomitant]
     Active Substance: DEXMETHYLPHENIDATE HYDROCHLORIDE
     Indication: ATTENTION DEFICIT/HYPERACTIVITY DISORDER
     Dosage: 5 MG, 1X/DAY, (IN THE AFTERNOON)
     Route: 048
  7. GENOTROPIN [Suspect]
     Active Substance: SOMATROPIN
     Indication: GROWTH HORMONE DEFICIENCY
     Dosage: 0.9 MG, 1X/DAY
  8. TYLENOL [Concomitant]
     Active Substance: ACETAMINOPHEN
     Indication: PAIN
     Dosage: UNK

REACTIONS (3)
  - Product dose omission [Unknown]
  - Drug ineffective [Unknown]
  - Device issue [Unknown]
